FAERS Safety Report 6795754-3 (Version None)
Quarter: 2010Q2

REPORT INFORMATION
  Report Type: 
  Country: None (occurrence: None)
  Receive Date: 20100625
  Receipt Date: 20100614
  Transmission Date: 20101027
  Serious: Yes (Other)
  Sender: FDA-Public Use
  Company Number: US-JNJFOC-20100604829

PATIENT
  Sex: Female
  Weight: 77.11 kg

DRUGS (14)
  1. REMICADE [Suspect]
     Indication: COLITIS ULCERATIVE
     Route: 042
  2. REMICADE [Suspect]
     Route: 042
  3. REMICADE [Suspect]
     Indication: CROHN'S DISEASE
     Route: 042
  4. REMICADE [Suspect]
     Route: 042
  5. PENTASA [Concomitant]
     Indication: COLITIS ULCERATIVE
  6. PENTASA [Concomitant]
     Indication: CROHN'S DISEASE
  7. IMURAN [Concomitant]
     Indication: COLITIS ULCERATIVE
  8. IMURAN [Concomitant]
     Indication: CROHN'S DISEASE
  9. PREDNISONE [Concomitant]
     Indication: COLITIS ULCERATIVE
  10. PREDNISONE [Concomitant]
     Indication: CROHN'S DISEASE
  11. WARFARIN [Concomitant]
     Indication: ANTICOAGULANT THERAPY
  12. PROCHLORPERAZINE [Concomitant]
     Indication: NAUSEA
  13. CLONAZEPAM [Concomitant]
     Indication: ANXIETY
  14. PROTONIX [Concomitant]
     Indication: GASTROOESOPHAGEAL REFLUX DISEASE

REACTIONS (6)
  - ASTHENIA [None]
  - BLOOD PRESSURE DECREASED [None]
  - FEELING ABNORMAL [None]
  - INFUSION RELATED REACTION [None]
  - PHOTOSENSITIVITY REACTION [None]
  - WEIGHT DECREASED [None]
